FAERS Safety Report 18435867 (Version 1)
Quarter: 2020Q4

REPORT INFORMATION
  Report Type: Spontaneous
  Country: JP (occurrence: JP)
  Receive Date: 20201028
  Receipt Date: 20201028
  Transmission Date: 20210114
  Serious: Yes (Death, Hospitalization, Other)
  Sender: FDA-Public Use
  Company Number: JP-ASTELLAS-2020JP015069

PATIENT
  Age: 9 Decade
  Sex: Male

DRUGS (1)
  1. GRACEPTOR [Suspect]
     Active Substance: TACROLIMUS
     Indication: RENAL TRANSPLANT
     Dosage: UNK UNK, UNKNOWN FREQ, THE PATIENT TOOK TACROLIMUS AFTER DECAPSULATION AND MELTING IN WATER
     Route: 048

REACTIONS (5)
  - Pneumonia aspiration [Fatal]
  - Arrhythmia [Unknown]
  - Dysphagia [Unknown]
  - General physical health deterioration [Fatal]
  - Wrong technique in product usage process [Unknown]
